FAERS Safety Report 24190532 (Version 1)
Quarter: 2024Q3

REPORT INFORMATION
  Report Type: Report from Study
  Country: CO (occurrence: CO)
  Receive Date: 20240808
  Receipt Date: 20240808
  Transmission Date: 20241017
  Serious: Yes (Hospitalization, Other)
  Sender: UCB
  Company Number: CO-UCBSA-2024039602

PATIENT
  Age: 13 Year
  Sex: Male

DRUGS (2)
  1. LACOSAMIDE [Suspect]
     Active Substance: LACOSAMIDE
     Indication: Epilepsy
     Dosage: 8 MILLILITER, EVERY 8 HOURS
     Route: 048
     Dates: start: 20210426
  2. OXCARBAZEPINE [Concomitant]
     Active Substance: OXCARBAZEPINE
     Indication: Product used for unknown indication
     Dosage: UNK

REACTIONS (6)
  - Seizure [Recovered/Resolved]
  - Fall [Recovered/Resolved]
  - Femur fracture [Not Recovered/Not Resolved]
  - Fracture treatment [Recovered/Resolved]
  - Ileus paralytic [Not Recovered/Not Resolved]
  - Laparotomy [Recovered/Resolved]

NARRATIVE: CASE EVENT DATE: 20240529
